FAERS Safety Report 7616984-4 (Version None)
Quarter: 2011Q3

REPORT INFORMATION
  Report Type: 
  Country: None (occurrence: None)
  Receive Date: 20110718
  Receipt Date: 20110707
  Transmission Date: 20111222
  Serious: No
  Sender: FDA-Public Use
  Company Number: US-BIOGENIDEC-2011BI025492

PATIENT
  Age: 58 Year
  Sex: Female

DRUGS (1)
  1. AVONEX [Suspect]
     Indication: MULTIPLE SCLEROSIS
     Route: 030
     Dates: start: 20020502

REACTIONS (11)
  - MEMORY IMPAIRMENT [None]
  - INJECTION SITE ERYTHEMA [None]
  - MUSCLE SPASMS [None]
  - INJECTION SITE RASH [None]
  - ABASIA [None]
  - DEHYDRATION [None]
  - VERTIGO [None]
  - INJECTION SITE PRURITUS [None]
  - MOBILITY DECREASED [None]
  - JOINT SWELLING [None]
  - MYALGIA [None]
